FAERS Safety Report 17718267 (Version 1)
Quarter: 2020Q2

REPORT INFORMATION
  Report Type: Spontaneous
  Country: US (occurrence: US)
  Receive Date: 20200428
  Receipt Date: 20200428
  Transmission Date: 20200714
  Serious: Yes (Other)
  Sender: FDA-Public Use
  Company Number: None

PATIENT
  Age: 71 Year
  Sex: Female
  Weight: 59.4 kg

DRUGS (23)
  1. DILTIAZEM 50MG/10ML [Concomitant]
  2. METOPROLOL SUCCINATE 25MG [Concomitant]
     Active Substance: METOPROLOL SUCCINATE
  3. FLAXSEED OIL 1000MG [Concomitant]
  4. DOCUSATE 100MG [Concomitant]
     Active Substance: DOCUSATE
  5. VITAMIN D 1.25MG [Concomitant]
  6. ASPIRIN 81MG [Concomitant]
     Active Substance: ASPIRIN
  7. TEMOZOLOMIDE. [Suspect]
     Active Substance: TEMOZOLOMIDE
     Indication: PRODUCT USED FOR UNKNOWN INDICATION
     Route: 048
     Dates: start: 20200229, end: 20200428
  8. PANTOPRAZOLE 40MG [Concomitant]
     Active Substance: PANTOPRAZOLE SODIUM
  9. ACETAMINOPHEN 325MG [Concomitant]
  10. CETIRIZINE [Concomitant]
     Active Substance: CETIRIZINE HYDROCHLORIDE
  11. OXYCODONE 5MG [Concomitant]
     Active Substance: OXYCODONE
  12. LEVETIRACETAM 750MG [Concomitant]
     Active Substance: LEVETIRACETAM
  13. PROBIOTIC ACIDOPHILUS [Concomitant]
     Active Substance: LACTOBACILLUS ACIDOPHILUS
  14. LOVENOX [Concomitant]
     Active Substance: ENOXAPARIN SODIUM
  15. LIDOCAINE 4% [Concomitant]
     Active Substance: LIDOCAINE
  16. ATORVASTATIN 20MG [Concomitant]
     Active Substance: ATORVASTATIN
  17. MULTIVITAMIN [Concomitant]
     Active Substance: VITAMINS
  18. TEMOZOLOMIDE. [Suspect]
     Active Substance: TEMOZOLOMIDE
     Indication: PRODUCT USED FOR UNKNOWN INDICATION
     Route: 048
     Dates: start: 20200229, end: 20200428
  19. GLUCOSAMINE CHONDROITIN ADV [Concomitant]
  20. CITRACAL +D 250-107-500MG [Concomitant]
  21. ESTRADIOL 0.1MG/GM [Concomitant]
  22. VITAMIN C 500MG, ONDANSETRON 4MG [Concomitant]
  23. BACTRIM DS 800-160MG [Concomitant]

REACTIONS (1)
  - Hospice care [None]

NARRATIVE: CASE EVENT DATE: 20200428
